FAERS Safety Report 6927938-5 (Version None)
Quarter: 2010Q3

REPORT INFORMATION
  Report Type: 
  Country: None (occurrence: None)
  Receive Date: 20100812
  Receipt Date: 20100729
  Transmission Date: 20110219
  Serious: Yes (Hospitalization, Disabling, Other)
  Sender: FDA-Public Use
  Company Number: 2010P1000228

PATIENT
  Age: 46 Year
  Sex: Female
  Weight: 112.9457 kg

DRUGS (7)
  1. FENTANYL [Suspect]
     Indication: BACK PAIN
     Dosage: 50 MCG/HR; 1 PATCH Q3D; TDER
     Route: 062
     Dates: start: 20100429, end: 20100623
  2. FENTANYL [Suspect]
     Indication: FIBROMYALGIA
     Dosage: 50 MCG/HR; 1 PATCH Q3D; TDER
     Route: 062
     Dates: start: 20100429, end: 20100623
  3. CLONIDINE [Concomitant]
  4. NORVASC [Concomitant]
  5. PROTONIX [Concomitant]
  6. PAXIL [Concomitant]
  7. TRAZODONE HCL [Concomitant]

REACTIONS (12)
  - ANGINA PECTORIS [None]
  - ASTHENIA [None]
  - CHEST DISCOMFORT [None]
  - CHEST PAIN [None]
  - DEPRESSION [None]
  - DYSPNOEA [None]
  - GENERALISED ANXIETY DISORDER [None]
  - MUSCULOSKELETAL PAIN [None]
  - PAIN IN EXTREMITY [None]
  - PRODUCT QUALITY ISSUE [None]
  - PULMONARY THROMBOSIS [None]
  - SENSATION OF HEAVINESS [None]
